FAERS Safety Report 24428834 (Version 3)
Quarter: 2024Q4

REPORT INFORMATION
  Report Type: Spontaneous
  Country: IT (occurrence: IT)
  Receive Date: 20241011
  Receipt Date: 20241205
  Transmission Date: 20250115
  Serious: Yes (Hospitalization, Other)
  Sender: JAZZ
  Company Number: IT-JAZZ PHARMACEUTICALS-2024-IT-017321

PATIENT

DRUGS (2)
  1. VYXEOS [Suspect]
     Active Substance: CYTARABINE\DAUNORUBICIN
     Indication: Acute myeloid leukaemia
     Dosage: DAY 1, DAY 3, DAY 8 (NOT ADMINISTERED THE DOSE ON DAY 5)
     Dates: start: 20240930
  2. VYXEOS [Suspect]
     Active Substance: CYTARABINE\DAUNORUBICIN
     Dosage: DAY 1, DAY 3, DAY 8 (NOT ADMINISTERED THE DOSE ON DAY 5)
     Dates: start: 20241002, end: 20241007

REACTIONS (5)
  - Tumour lysis syndrome [Recovered/Resolved]
  - Acute kidney injury [Unknown]
  - Disseminated intravascular coagulation [Unknown]
  - Hypofibrinogenaemia [Unknown]
  - Weight increased [Unknown]

NARRATIVE: CASE EVENT DATE: 20241002
